FAERS Safety Report 4827852-5 (Version None)
Quarter: 2005Q4

REPORT INFORMATION
  Report Type: 
  Country: None (occurrence: None)
  Receive Date: 20051114
  Receipt Date: 20051114
  Transmission Date: 20060501
  Serious: Yes (Other)
  Sender: FDA-Public Use
  Company Number: None

PATIENT
  Age: 88 Year
  Sex: Female

DRUGS (14)
  1. QUETIAPINE FUMARATE [Suspect]
     Dosage: 75 MG   BID   PO
     Route: 048
     Dates: start: 20050627, end: 20051111
  2. ACETAMINOPHEN [Concomitant]
  3. CLAFORAN [Concomitant]
  4. ALBUTEROL [Concomitant]
  5. CLEOCIN [Concomitant]
  6. AMLODIPINE [Concomitant]
  7. LEVAQUIN [Concomitant]
  8. BUDESONIDE [Concomitant]
  9. ZOSYN [Concomitant]
  10. ENALAPRIL [Concomitant]
  11. EPOGEN [Concomitant]
  12. IPRATROPIUM BROMIDE [Concomitant]
  13. LANSOPRAZOLE [Concomitant]
  14. HEPARIN [Concomitant]

REACTIONS (3)
  - DIABETES MELLITUS INADEQUATE CONTROL [None]
  - DRUG EFFECT DECREASED [None]
  - GLYCOSYLATED HAEMOGLOBIN INCREASED [None]
